FAERS Safety Report 6372580-0 (Version None)
Quarter: 2009Q3

REPORT INFORMATION
  Report Type: 
  Country: None (occurrence: None)
  Receive Date: 20090924
  Receipt Date: 20081219
  Transmission Date: 20100115
  Serious: No
  Sender: FDA-Public Use
  Company Number: US-ASTRAZENECA-2008UW18325

PATIENT
  Age: 475 Month
  Sex: Female
  Weight: 81.6 kg

DRUGS (7)
  1. SEROQUEL [Suspect]
     Indication: SLEEP DISORDER
     Route: 048
     Dates: start: 20030701
  2. SEROQUEL [Suspect]
     Dosage: 100MG, 200MG
     Route: 048
     Dates: start: 20031101, end: 20060301
  3. SEROQUEL [Suspect]
     Route: 048
     Dates: start: 20030801, end: 20031101
  4. SEROQUEL [Suspect]
     Route: 048
     Dates: start: 20081101
  5. INVEGA [Concomitant]
  6. CYMBALTA [Concomitant]
  7. TRAZODONE HCL [Concomitant]

REACTIONS (5)
  - BLOOD CHOLESTEROL INCREASED [None]
  - DIABETES MELLITUS [None]
  - FURUNCLE [None]
  - GLYCOSURIA [None]
  - NASOPHARYNGITIS [None]
